FAERS Safety Report 21314305 (Version 1)
Quarter: 2022Q3

REPORT INFORMATION
  Report Type: Spontaneous
  Country: US (occurrence: None)
  Receive Date: 20220909
  Receipt Date: 20220909
  Transmission Date: 20221026
  Serious: No
  Sender: FDA-Public Use
  Company Number: US-ARIS GLOBAL-202109-1741

PATIENT
  Sex: Male

DRUGS (22)
  1. OXERVATE [Suspect]
     Active Substance: CENEGERMIN-BKBJ
     Indication: Neurotrophic keratopathy
     Route: 047
     Dates: start: 20210916
  2. OXERVATE [Suspect]
     Active Substance: CENEGERMIN-BKBJ
     Indication: Hypoaesthesia eye
  3. REFRESH CLASSIC [Concomitant]
     Active Substance: POLYVINYL ALCOHOL\POVIDONE
  4. REFRESH CELLUVISC [Concomitant]
     Active Substance: CARBOXYMETHYLCELLULOSE SODIUM
  5. RESTASIS [Concomitant]
     Active Substance: CYCLOSPORINE
  6. FERROUS SULFATE [Concomitant]
     Active Substance: FERROUS SULFATE
     Dosage: 324 (65) MG
  7. LEVOCARNITINE [Concomitant]
     Active Substance: LEVOCARNITINE
     Dosage: 1000-10/15
  8. COENZYME Q-10 [Concomitant]
  9. ASPIRIN [Concomitant]
     Active Substance: ASPIRIN
  10. MULTIVITAMIN 50 PLUS [Concomitant]
  11. VITAMIN E [Concomitant]
     Active Substance: .ALPHA.-TOCOPHEROL
  12. VITAMIN D3 [Concomitant]
     Active Substance: CHOLECALCIFEROL
  13. CALCIUM CITRATE\CHOLECALCIFEROL [Concomitant]
     Active Substance: CALCIUM CITRATE\CHOLECALCIFEROL
  14. ACETAMINOPHEN [Concomitant]
     Active Substance: ACETAMINOPHEN
  15. VITAMIN C [Concomitant]
     Active Substance: ASCORBIC ACID
  16. GABAPENTIN [Concomitant]
     Active Substance: GABAPENTIN
  17. DOXYCYCLINE HYCLATE [Concomitant]
     Active Substance: DOXYCYCLINE HYCLATE
  18. BISOPROLOL FUMARATE [Concomitant]
     Active Substance: BISOPROLOL FUMARATE
  19. NORTRIPTYLINE HYDROCHLORIDE [Concomitant]
     Active Substance: NORTRIPTYLINE HYDROCHLORIDE
  20. OMEPRAZOLE [Concomitant]
     Active Substance: OMEPRAZOLE
  21. LOSARTAN POTASSIUM [Concomitant]
     Active Substance: LOSARTAN POTASSIUM
  22. PRED FORTE [Concomitant]
     Active Substance: PREDNISOLONE ACETATE

REACTIONS (3)
  - Intentional product misuse [Unknown]
  - Eye pain [Not Recovered/Not Resolved]
  - Eye irritation [Unknown]
